FAERS Safety Report 9292213 (Version 1)
Quarter: 2013Q2

REPORT INFORMATION
  Report Type: Spontaneous
  Country: GB (occurrence: GB)
  Receive Date: 20130516
  Receipt Date: 20130516
  Transmission Date: 20140414
  Serious: Yes (Other)
  Sender: FDA-Public Use
  Company Number: GB-009507513-1305GBR009054

PATIENT
  Age: 38 Year
  Sex: Male
  Weight: 96.5 kg

DRUGS (3)
  1. VICTRELIS [Suspect]
     Indication: HEPATITIS C
     Dosage: 800 MG, 3 DOSAGES/1 DAY INTERVAL
     Route: 048
     Dates: start: 20130321
  2. REBETOL [Concomitant]
     Dosage: 600 MG, 2 DOSAGES/1 DAY INTERVAL
     Route: 048
  3. VIRAFERONPEG [Concomitant]
     Indication: HEPATITIS C
     Dosage: 150 MICROGRAM, UNK
     Route: 058

REACTIONS (1)
  - Hypertriglyceridaemia [Not Recovered/Not Resolved]
